FAERS Safety Report 20794566 (Version 1)
Quarter: 2022Q2

REPORT INFORMATION
  Report Type: Spontaneous
  Country: US (occurrence: None)
  Receive Date: 20220505
  Receipt Date: 20220505
  Transmission Date: 20220721
  Serious: No
  Sender: FDA-Public Use
  Company Number: None

PATIENT
  Age: 48 Year
  Sex: Female
  Weight: 86.85 kg

DRUGS (5)
  1. PAXLOVID [Suspect]
     Active Substance: NIRMATRELVIR\RITONAVIR
     Indication: COVID-19
     Dosage: FREQUENCY : TWICE A DAY;?
     Route: 048
     Dates: start: 20220427, end: 20220501
  2. VITAMINS [Concomitant]
     Active Substance: VITAMINS
  3. FAMOTIDINE [Concomitant]
     Active Substance: FAMOTIDINE
  4. BENEFIBER [Concomitant]
     Active Substance: STARCH, WHEAT
  5. SIMETHICONE (DIMETHICONE) [Concomitant]
     Active Substance: DIMETHICONE

REACTIONS (2)
  - SARS-CoV-2 antibody test positive [None]
  - Disease recurrence [None]

NARRATIVE: CASE EVENT DATE: 20220504
